FAERS Safety Report 18802713 (Version 1)
Quarter: 2021Q1

REPORT INFORMATION
  Report Type: Spontaneous
  Country: US (occurrence: US)
  Receive Date: 20210128
  Receipt Date: 20210128
  Transmission Date: 20210419
  Serious: No
  Sender: FDA-Public Use
  Company Number: US-PERRIGO-20US006873

PATIENT
  Age: 67 Year
  Sex: Female
  Weight: 63.49 kg

DRUGS (2)
  1. TRETINOIN 0.05% CREAM (2L4) [Suspect]
     Active Substance: TRETINOIN
     Indication: SKIN PAPILLOMA
     Dosage: 1 APPLICATION, NIGHTLY
     Route: 061
     Dates: start: 202005
  2. TRETINOIN 0.05% CREAM (2L4) [Suspect]
     Active Substance: TRETINOIN
     Indication: SKIN WRINKLING
     Dosage: 1 APPLICATION, NIGHTLY
     Route: 061
     Dates: start: 2014, end: 202005

REACTIONS (3)
  - Drug effective for unapproved indication [Recovered/Resolved]
  - Drug ineffective for unapproved indication [Unknown]
  - Application site exfoliation [Recovered/Resolved]

NARRATIVE: CASE EVENT DATE: 2014
